FAERS Safety Report 7825729-4 (Version None)
Quarter: 2011Q4

REPORT INFORMATION
  Report Type: 
  Country: None (occurrence: None)
  Receive Date: 20111019
  Receipt Date: 20111011
  Transmission Date: 20120403
  Serious: Yes (Other)
  Sender: FDA-Public Use
  Company Number: DE-BAYER-2011-099917

PATIENT
  Age: 44 Year
  Sex: Male

DRUGS (3)
  1. VANCOMYCIN HCL [Suspect]
     Indication: SEPSIS
  2. MEROPENEM [Suspect]
     Indication: SEPSIS
  3. MOXIFLOXACIN [Suspect]
     Indication: SEPSIS

REACTIONS (4)
  - RASH MACULO-PAPULAR [None]
  - RENAL FAILURE [None]
  - EOSINOPHILIA [None]
  - DRUG RASH WITH EOSINOPHILIA AND SYSTEMIC SYMPTOMS [None]
